FAERS Safety Report 8244707-7 (Version None)
Quarter: 2012Q1

REPORT INFORMATION
  Report Type: 
  Country: None (occurrence: None)
  Receive Date: 20120329
  Receipt Date: 20110210
  Transmission Date: 20120608
  Serious: No
  Sender: FDA-Public Use
  Company Number: US-MYLANLABS-2011S1002810

PATIENT
  Age: 47 Year
  Sex: Female
  Weight: 83.01 kg

DRUGS (2)
  1. FENTANYL-100 [Suspect]
     Dosage: CHANGED Q 72 HOURS.
     Route: 062
     Dates: start: 20110129, end: 20110201
  2. FENTANYL-100 [Suspect]
     Indication: FIBROMYALGIA
     Dosage: CHANGED Q 72 HOURS.
     Route: 062
     Dates: start: 20110111, end: 20110120

REACTIONS (8)
  - ANXIETY [None]
  - DIARRHOEA [None]
  - HEADACHE [None]
  - NAUSEA [None]
  - DIZZINESS [None]
  - CHILLS [None]
  - DRUG EFFECT INCREASED [None]
  - VOMITING [None]
